FAERS Safety Report 7346881-3 (Version None)
Quarter: 2011Q1

REPORT INFORMATION
  Report Type: 
  Country: None (occurrence: None)
  Receive Date: 20110303
  Receipt Date: 20110225
  Transmission Date: 20110831
  Serious: Yes (Other)
  Sender: FDA-Public Use
  Company Number: GB-ACCORD-008152

PATIENT
  Age: 55 Year
  Sex: Female

DRUGS (5)
  1. DEXAMETHASONE (DEXAMETHASONE) [Concomitant]
  2. CARBOPLATIN [Suspect]
     Indication: OVARIAN CANCER
     Dosage: 175 MG/M2
     Dates: start: 20101104
  3. PACLITAXEL [Suspect]
     Indication: OVARIAN CANCER
     Dosage: 350 MG
     Dates: start: 20101104
  4. ACETAMINOPHEN AND CODEINE PHOSPHATE [Concomitant]
  5. ONDANSETRON [Concomitant]

REACTIONS (4)
  - ARTERIAL THROMBOSIS [None]
  - EMBOLISM ARTERIAL [None]
  - PAIN IN EXTREMITY [None]
  - SPLINTER HAEMORRHAGES [None]
